FAERS Safety Report 5927187-3 (Version None)
Quarter: 2008Q4

REPORT INFORMATION
  Report Type: 
  Country: None (occurrence: None)
  Receive Date: 20081022
  Receipt Date: 20081010
  Transmission Date: 20090506
  Serious: Yes (Other)
  Sender: FDA-Public Use
  Company Number: DE-PFIZER INC-2008082345

PATIENT
  Sex: Male

DRUGS (3)
  1. NEURONTIN [Suspect]
     Indication: NEURALGIA
     Dosage: DAILY DOSE:1500MG
     Route: 048
     Dates: start: 20080601, end: 20080929
  2. LYRICA [Suspect]
     Route: 048
     Dates: start: 20080101, end: 20080101
  3. CIPRALEX [Concomitant]

REACTIONS (2)
  - BLOOD BILIRUBIN INCREASED [None]
  - LEUKOPENIA [None]
